FAERS Safety Report 6303066-7 (Version None)
Quarter: 2009Q3

REPORT INFORMATION
  Report Type: 
  Country: None (occurrence: None)
  Receive Date: 20090810
  Receipt Date: 20090730
  Transmission Date: 20100115
  Serious: Yes (Hospitalization, Other)
  Sender: FDA-Public Use
  Company Number: US-ROCHE-634304

PATIENT
  Sex: Female
  Weight: 70.3 kg

DRUGS (4)
  1. BONIVA [Suspect]
     Indication: OSTEOPENIA
     Dosage: OTHER INDICATION: OSTEOPOROSIS
     Route: 048
     Dates: start: 20070107, end: 20090501
  2. VERAPAMIL [Concomitant]
     Indication: MIGRAINE
     Dosage: OTHER INDICATION: HYPERTENSION
     Route: 048
     Dates: start: 20090507
  3. CALCIUM [Concomitant]
     Indication: OSTEOPOROSIS
     Route: 048
     Dates: end: 20070101
  4. PROZAC [Concomitant]
     Indication: DEPRESSION
     Route: 048

REACTIONS (3)
  - HYPERLIPIDAEMIA [None]
  - HYPERTENSION [None]
  - MIGRAINE [None]
